FAERS Safety Report 6642981-1 (Version None)
Quarter: 2010Q1

REPORT INFORMATION
  Report Type: 
  Country: None (occurrence: None)
  Receive Date: 20100319
  Receipt Date: 20100312
  Transmission Date: 20100710
  Serious: Yes (Hospitalization)
  Sender: FDA-Public Use
  Company Number: A0844493A

PATIENT
  Age: 38 Year
  Sex: Female

DRUGS (2)
  1. TYKERB [Suspect]
     Indication: BREAST CANCER
     Dosage: 250MG FIVE TIMES PER DAY
     Route: 048
     Dates: start: 20070801
  2. HERCEPTIN [Concomitant]

REACTIONS (3)
  - DYSPNOEA [None]
  - NAIL DISCOLOURATION [None]
  - SKIN DISCOLOURATION [None]
